FAERS Safety Report 8549156-X (Version None)
Quarter: 2012Q3

REPORT INFORMATION
  Report Type: 
  Country: None (occurrence: None)
  Receive Date: 20120730
  Receipt Date: 20120724
  Transmission Date: 20120928
  Serious: Yes (Hospitalization, Other)
  Sender: FDA-Public Use
  Company Number: US-PFIZER INC-2012179594

PATIENT
  Sex: Female
  Weight: 79.4 kg

DRUGS (5)
  1. CLONAZEPAM [Suspect]
     Indication: RESTLESS LEGS SYNDROME
     Dosage: 1 MG, 1X/DAY
     Route: 048
     Dates: start: 20120601
  2. PREDNISONE [Concomitant]
     Dosage: UNK
  3. EFFEXOR XR [Suspect]
     Indication: DEPRESSION
     Dosage: 300 MG, 1X/DAY
     Route: 048
     Dates: end: 20120501
  4. PREMPRO [Suspect]
     Indication: MENOPAUSAL SYMPTOMS
     Dosage: UNK, 1X/DAY
     Route: 048
     Dates: end: 20120501
  5. ENBREL [Suspect]
     Indication: RHEUMATOID ARTHRITIS
     Dosage: 50 MG, WEEKLY
     Route: 058
     Dates: end: 20120501

REACTIONS (7)
  - STAPHYLOCOCCAL INFECTION [None]
  - DRUG INEFFECTIVE [None]
  - GANGRENE [None]
  - RESTLESS LEGS SYNDROME [None]
  - DARK CIRCLES UNDER EYES [None]
  - INSOMNIA [None]
  - IMMUNE SYSTEM DISORDER [None]
